FAERS Safety Report 5604422-2 (Version None)
Quarter: 2008Q1

REPORT INFORMATION
  Report Type: 
  Country: None (occurrence: None)
  Receive Date: 20080128
  Receipt Date: 20080121
  Transmission Date: 20080703
  Serious: Yes (Other)
  Sender: FDA-Public Use
  Company Number: SY-JNJFOC-20080105324

PATIENT
  Sex: Female

DRUGS (3)
  1. REMICADE [Suspect]
     Indication: RHEUMATOID ARTHRITIS
     Dosage: 0-1-2-3-4-5
     Route: 042
  2. METHOTREXATE [Concomitant]
  3. ANTIMALARIAL DRUGS [Concomitant]

REACTIONS (1)
  - BREAST CANCER [None]
